FAERS Safety Report 19079692 (Version 1)
Quarter: 2021Q1

REPORT INFORMATION
  Report Type: Spontaneous
  Country: JP (occurrence: JP)
  Receive Date: 20210331
  Receipt Date: 20210331
  Transmission Date: 20210420
  Serious: Yes (Hospitalization, Other)
  Sender: FDA-Public Use
  Company Number: JP-VALIDUS PHARMACEUTICALS LLC-JP-2021VAL000810

PATIENT
  Age: 44 Year
  Sex: Female
  Weight: 47 kg

DRUGS (4)
  1. FUROSEMIDE. [Suspect]
     Active Substance: FUROSEMIDE
     Indication: PERIPARTUM CARDIOMYOPATHY
     Dosage: 40 MG, QD
     Route: 065
  2. DOBUTAMINE [Suspect]
     Active Substance: DOBUTAMINE HYDROCHLORIDE
     Indication: PERIPARTUM CARDIOMYOPATHY
     Dosage: 3 UG/KG, QMN
     Route: 065
  3. CARPERITIDE [Suspect]
     Active Substance: CARPERITIDE
     Indication: PERIPARTUM CARDIOMYOPATHY
     Dosage: 0.028 UG/KG, QMN
     Route: 065
  4. BROMOCRIPTINE MESYLATE [Suspect]
     Active Substance: BROMOCRIPTINE MESYLATE
     Indication: PERIPARTUM CARDIOMYOPATHY
     Dosage: 5 MG, QD
     Route: 065

REACTIONS (6)
  - Condition aggravated [Recovering/Resolving]
  - Heart rate decreased [Recovering/Resolving]
  - Pericardial haemorrhage [Recovering/Resolving]
  - Cardiac tamponade [Recovering/Resolving]
  - Pyrexia [Unknown]
  - Tachyarrhythmia [Recovering/Resolving]
